FAERS Safety Report 9225458 (Version 2)
Quarter: 2013Q2

REPORT INFORMATION
  Report Type: Spontaneous
  Country: US (occurrence: US)
  Receive Date: 20130411
  Receipt Date: 20130625
  Transmission Date: 20140414
  Serious: Yes (Other)
  Sender: FDA-Public Use
  Company Number: US-ROCHE-1209419

PATIENT
  Age: 35 Year
  Sex: Female

DRUGS (3)
  1. ACTILYSE [Suspect]
     Indication: THROMBOSIS
     Dosage: PULSE SPRAY DAILY
     Route: 065
  2. ABCIXIMAB [Suspect]
     Indication: THROMBOSIS
     Route: 065
  3. HEPARIN [Suspect]
     Indication: THROMBOSIS
     Route: 065

REACTIONS (3)
  - Vascular rupture [Unknown]
  - Haemoptysis [Unknown]
  - Chest pain [Unknown]
